FAERS Safety Report 7601787-7 (Version None)
Quarter: 2011Q3

REPORT INFORMATION
  Report Type: 
  Country: None (occurrence: None)
  Receive Date: 20110711
  Receipt Date: 20110707
  Transmission Date: 20111222
  Serious: Yes (Hospitalization, Other)
  Sender: FDA-Public Use
  Company Number: CZ-PFIZER INC-2011153864

PATIENT
  Age: 23 Year
  Sex: Male

DRUGS (5)
  1. TACROLIMUS [Concomitant]
     Indication: WEGENER'S GRANULOMATOSIS
     Dosage: UNK
     Dates: start: 20050101
  2. MYCOPHENOLATE MOFETIL [Concomitant]
     Indication: WEGENER'S GRANULOMATOSIS
     Dosage: UNK
     Dates: start: 20050101
  3. SOLU-MEDROL [Suspect]
     Indication: WEGENER'S GRANULOMATOSIS
     Dosage: 1G
  4. PREDNISONE [Suspect]
     Indication: WEGENER'S GRANULOMATOSIS
     Dosage: 60 MG
  5. MEDROL [Suspect]
     Indication: WEGENER'S GRANULOMATOSIS
     Dosage: 16-32 MG DAILY
     Dates: start: 20050101

REACTIONS (5)
  - BLINDNESS [None]
  - SPINAL COMPRESSION FRACTURE [None]
  - OSTEOPOROSIS [None]
  - EYELID PTOSIS [None]
  - DISORDER OF ORBIT [None]
